FAERS Safety Report 18203869 (Version 1)
Quarter: 2020Q3

REPORT INFORMATION
  Report Type: Spontaneous
  Country: RU (occurrence: RU)
  Receive Date: 20200827
  Receipt Date: 20200827
  Transmission Date: 20201103
  Serious: Yes (Hospitalization)
  Sender: FDA-Public Use
  Company Number: NVSC2020RU233601

PATIENT
  Age: 71 Year
  Sex: Male
  Weight: 75 kg

DRUGS (4)
  1. TILORAM [Concomitant]
     Indication: VIRAL INFECTION
     Dosage: 125 MG, QD
     Route: 048
     Dates: start: 20200806, end: 20200807
  2. AMOKSIKLAV [Suspect]
     Active Substance: AMOXICILLIN\CLAVULANATE POTASSIUM
     Indication: BACTERIAL INFECTION
     Dosage: 1200 MG, QD
     Route: 048
     Dates: start: 20200807, end: 20200809
  3. AZITHROMYCIN ANHYDROUS. [Concomitant]
     Active Substance: AZITHROMYCIN ANHYDROUS
     Indication: BACTERIAL INFECTION
     Dosage: 0.5 G, QD
     Route: 048
     Dates: start: 20200806, end: 20200808
  4. PARACETAMOL [Concomitant]
     Active Substance: ACETAMINOPHEN
     Indication: HYPERTHERMIA THERAPY
     Dosage: 0.5 G, QD
     Route: 048
     Dates: start: 20200804, end: 20200809

REACTIONS (5)
  - Acute kidney injury [Unknown]
  - Hepatotoxicity [Unknown]
  - Oliguria [Unknown]
  - Drug ineffective [Unknown]
  - Acute hepatic failure [Unknown]

NARRATIVE: CASE EVENT DATE: 20200808
